FAERS Safety Report 6976228-3 (Version None)
Quarter: 2010Q3

REPORT INFORMATION
  Report Type: 
  Country: None (occurrence: None)
  Receive Date: 20100910
  Receipt Date: 20090421
  Transmission Date: 20110219
  Serious: No
  Sender: FDA-Public Use
  Company Number: US-WYE-H09055309

PATIENT
  Sex: Female
  Weight: 61.74 kg

DRUGS (8)
  1. PRISTIQ [Suspect]
     Indication: DEPRESSION
     Route: 048
     Dates: start: 20090301
  2. PRISTIQ [Suspect]
     Indication: ANXIETY
  3. ADDERALL 10 [Concomitant]
  4. LORAZEPAM [Concomitant]
  5. LEVOTHROID [Concomitant]
  6. OMEPRAZOLE [Concomitant]
  7. TOPAMAX [Concomitant]
  8. CONJUGATED ESTROGENS [Concomitant]

REACTIONS (3)
  - DRUG INEFFECTIVE [None]
  - INCREASED APPETITE [None]
  - WEIGHT INCREASED [None]
